FAERS Safety Report 9373683 (Version 1)
Quarter: 2013Q2

REPORT INFORMATION
  Report Type: Spontaneous
  Country: CN (occurrence: CN)
  Receive Date: 20130627
  Receipt Date: 20130627
  Transmission Date: 20140414
  Serious: Yes (Other)
  Sender: FDA-Public Use
  Company Number: CN-BAXTER-2013BAX024269

PATIENT
  Age: 84 Year
  Sex: Female
  Weight: 60 kg

DRUGS (5)
  1. MEDIUM AND LONG CHAIN FAT EMULSION INJECTION (C8-24) 20% [Suspect]
     Indication: NUTRITIONAL SUPPLEMENTATION
     Route: 042
     Dates: start: 20120707, end: 20120707
  2. 0.9% SODIUM CHLORIDE INJECTION [Suspect]
     Indication: PRODUCT USED FOR UNKNOWN INDICATION
     Route: 042
     Dates: start: 20120707
  3. 0.9% SODIUM CHLORIDE INJECTION [Suspect]
  4. CEFTIZOXIME [Suspect]
     Indication: PRODUCT USED FOR UNKNOWN INDICATION
     Dosage: .75 X 4 AMPULES
     Route: 042
     Dates: start: 20120706
  5. CEFTIZOXIME [Suspect]
     Dates: start: 20120707

REACTIONS (1)
  - Infusion related reaction [Recovered/Resolved]
